FAERS Safety Report 19110635 (Version 2)
Quarter: 2022Q1

REPORT INFORMATION
  Report Type: Spontaneous
  Country: US (occurrence: None)
  Receive Date: 20210409
  Receipt Date: 20220202
  Transmission Date: 20220423
  Serious: Yes (Other)
  Sender: FDA-Public Use
  Company Number: 2021A258949

PATIENT
  Age: 56 Year
  Sex: Female
  Weight: 93.4 kg

DRUGS (50)
  1. NEXIUM [Suspect]
     Active Substance: ESOMEPRAZOLE MAGNESIUM
     Indication: Gastrooesophageal reflux disease
     Route: 048
     Dates: start: 20081015
  2. NEXIUM [Suspect]
     Active Substance: ESOMEPRAZOLE MAGNESIUM
     Indication: Gastrooesophageal reflux disease
     Dosage: GENERIC
     Route: 065
     Dates: start: 20150601, end: 20161128
  3. OMEPRAZOLE [Suspect]
     Active Substance: OMEPRAZOLE
     Dosage: GENERIC
     Route: 065
     Dates: start: 20161228, end: 20190823
  4. DEXILANT [Suspect]
     Active Substance: DEXLANSOPRAZOLE
     Indication: Gastrooesophageal reflux disease
     Route: 065
     Dates: start: 20120925, end: 20130502
  5. TRAMADOL [Concomitant]
     Active Substance: TRAMADOL
  6. SIMVASTATIN [Concomitant]
     Active Substance: SIMVASTATIN
  7. FUROSEMIDE [Concomitant]
     Active Substance: FUROSEMIDE
  8. VOLTAREN [Concomitant]
     Active Substance: DICLOFENAC SODIUM
  9. MELOXICAM [Concomitant]
     Active Substance: MELOXICAM
  10. DICLOFENAC [Concomitant]
     Active Substance: DICLOFENAC
  11. KETOROLAC [Concomitant]
     Active Substance: KETOROLAC TROMETHAMINE
  12. SULFAMETHOXAZOLE [Concomitant]
     Active Substance: SULFAMETHOXAZOLE
  13. CIPROFLOXACIN [Concomitant]
     Active Substance: CIPROFLOXACIN
  14. AMOXICILLIN [Concomitant]
     Active Substance: AMOXICILLIN
  15. AZITHROMYCIN [Concomitant]
     Active Substance: AZITHROMYCIN
  16. LISINOPRIL [Concomitant]
     Active Substance: LISINOPRIL
  17. INDOMETHACIN [Concomitant]
     Active Substance: INDOMETHACIN
  18. MINOCYCLINE [Concomitant]
     Active Substance: MINOCYCLINE HYDROCHLORIDE
  19. PENICILLIN [Concomitant]
     Active Substance: PENICILLIN
  20. LEVOFLOXACIN [Concomitant]
     Active Substance: LEVOFLOXACIN
  21. BUMETANIDE [Concomitant]
     Active Substance: BUMETANIDE
  22. CEFUROXIME [Concomitant]
     Active Substance: CEFUROXIME
  23. TIZANIDINE [Concomitant]
     Active Substance: TIZANIDINE
  24. GABAPENTIN [Concomitant]
     Active Substance: GABAPENTIN
  25. AMLODIPINE [Concomitant]
     Active Substance: AMLODIPINE BESYLATE
  26. DICYCLOMINE [Concomitant]
     Active Substance: DICYCLOMINE HYDROCHLORIDE
  27. KLONOPIN [Concomitant]
     Active Substance: CLONAZEPAM
  28. PROAIR HFA [Concomitant]
     Active Substance: ALBUTEROL SULFATE
  29. OXYCODONE [Concomitant]
     Active Substance: OXYCODONE
  30. ZIPRASIDONE [Concomitant]
     Active Substance: ZIPRASIDONE
  31. CYMBALTA [Concomitant]
     Active Substance: DULOXETINE HYDROCHLORIDE
  32. DULOXETINE [Concomitant]
     Active Substance: DULOXETINE
  33. MONTELUKAST [Concomitant]
     Active Substance: MONTELUKAST SODIUM
  34. VENTOLIN [Concomitant]
     Active Substance: ALBUTEROL SULFATE
  35. ALENDRONATE [Concomitant]
     Active Substance: ALENDRONATE SODIUM
  36. LYRICA [Concomitant]
     Active Substance: PREGABALIN
  37. AMITIZA [Concomitant]
     Active Substance: LUBIPROSTONE
  38. BENZTROPINE [Concomitant]
     Active Substance: BENZTROPINE
  39. CLONAZEPAM [Concomitant]
     Active Substance: CLONAZEPAM
  40. ALBUTEROL [Concomitant]
     Active Substance: ALBUTEROL
  41. ADVAIR HFA [Concomitant]
     Active Substance: FLUTICASONE PROPIONATE\SALMETEROL XINAFOATE
  42. PREDNISONE [Concomitant]
     Active Substance: PREDNISONE
  43. METHYLPHENIDATE [Concomitant]
     Active Substance: METHYLPHENIDATE
  44. TRIHEXYPHENIDYL [Concomitant]
     Active Substance: TRIHEXYPHENIDYL
  45. TRIFLUOPERAZINE [Concomitant]
     Active Substance: TRIFLUOPERAZINE HYDROCHLORIDE
  46. MOVANTIK [Concomitant]
     Active Substance: NALOXEGOL OXALATE
  47. BENTYL [Concomitant]
     Active Substance: DICYCLOMINE HYDROCHLORIDE
  48. GEODON [Concomitant]
     Active Substance: ZIPRASIDONE HYDROCHLORIDE\ZIPRASIDONE MESYLATE
  49. IBUPROFEN [Concomitant]
     Active Substance: IBUPROFEN
  50. FLUTICASONE [Concomitant]
     Active Substance: FLUTICASONE

REACTIONS (3)
  - Chronic kidney disease [Not Recovered/Not Resolved]
  - Renal failure [Unknown]
  - Rebound acid hypersecretion [Unknown]

NARRATIVE: CASE EVENT DATE: 20120101
